FAERS Safety Report 8824789 (Version 1)
Quarter: 2012Q4

REPORT INFORMATION
  Report Type: Report from Study
  Country: FR (occurrence: FR)
  Receive Date: 20121004
  Receipt Date: 20121004
  Transmission Date: 20130627
  Serious: Yes (Hospitalization)
  Sender: FDA-Public Use
  Company Number: FR-ROCHE-1139915

PATIENT
  Sex: Male

DRUGS (4)
  1. RANIBIZUMAB [Suspect]
     Indication: AGE-RELATED MACULAR DEGENERATION
     Route: 050
  2. COZAAR [Concomitant]
  3. ALDACTONE [Concomitant]
  4. MEDIATENSYL [Concomitant]

REACTIONS (1)
  - Angina pectoris [Recovered/Resolved]
